FAERS Safety Report 6784617-5 (Version None)
Quarter: 2010Q2

REPORT INFORMATION
  Report Type: 
  Country: None (occurrence: None)
  Receive Date: 20100622
  Receipt Date: 20100611
  Transmission Date: 20101027
  Serious: Yes (Other)
  Sender: FDA-Public Use
  Company Number: A0866190A

PATIENT
  Sex: Female

DRUGS (2)
  1. ADVAIR DISKUS 100/50 [Suspect]
     Indication: CHRONIC OBSTRUCTIVE PULMONARY DISEASE
     Route: 065
  2. OXYGEN [Concomitant]

REACTIONS (4)
  - ADVERSE DRUG REACTION [None]
  - CATARACT [None]
  - PNEUMONIA [None]
  - VISION BLURRED [None]
